FAERS Safety Report 6246403-4 (Version None)
Quarter: 2009Q2

REPORT INFORMATION
  Report Type: 
  Country: None (occurrence: None)
  Receive Date: 20090624
  Receipt Date: 20090624
  Transmission Date: 20091009
  Serious: Yes (Other)
  Sender: FDA-Public Use
  Company Number: None

PATIENT
  Age: 49 Year
  Sex: Female
  Weight: 131.5431 kg

DRUGS (2)
  1. EFFEXOR XR [Suspect]
     Indication: DEPRESSION
     Dosage: 75MG 3X DAILY PO
     Route: 048
     Dates: start: 20051117, end: 20090523
  2. EFFEXOR XR [Suspect]
     Indication: PAIN MANAGEMENT
     Dosage: 75MG 3X DAILY PO
     Route: 048
     Dates: start: 20051117, end: 20090523

REACTIONS (42)
  - ANXIETY [None]
  - ARTHRALGIA [None]
  - ASTHENIA [None]
  - BALANCE DISORDER [None]
  - CHILLS [None]
  - CONVERSION DISORDER [None]
  - COORDINATION ABNORMAL [None]
  - CRYING [None]
  - DIARRHOEA [None]
  - DISTURBANCE IN ATTENTION [None]
  - DIZZINESS [None]
  - DRUG WITHDRAWAL SYNDROME [None]
  - DYSPNOEA [None]
  - EMOTIONAL DISTRESS [None]
  - FATIGUE [None]
  - FEAR [None]
  - FEELING ABNORMAL [None]
  - FLUSHING [None]
  - HYPERACUSIS [None]
  - INAPPROPRIATE AFFECT [None]
  - INCREASED APPETITE [None]
  - INSOMNIA [None]
  - LYMPHADENOPATHY [None]
  - MEMORY IMPAIRMENT [None]
  - MYALGIA [None]
  - NAUSEA [None]
  - NECK PAIN [None]
  - NIGHTMARE [None]
  - OBSESSIVE-COMPULSIVE DISORDER [None]
  - OEDEMA [None]
  - OEDEMA PERIPHERAL [None]
  - PAIN [None]
  - PALPITATIONS [None]
  - PARAESTHESIA [None]
  - PHOTOSENSITIVITY REACTION [None]
  - SALIVARY HYPERSECRETION [None]
  - SPEECH DISORDER [None]
  - SYNCOPE [None]
  - TEMPERATURE INTOLERANCE [None]
  - TINNITUS [None]
  - TREMOR [None]
  - VIOLENCE-RELATED SYMPTOM [None]
